FAERS Safety Report 23992811 (Version 2)
Quarter: 2024Q3

REPORT INFORMATION
  Report Type: Spontaneous
  Country: US (occurrence: US)
  Receive Date: 20240620
  Receipt Date: 20240723
  Transmission Date: 20241017
  Serious: No
  Sender: BRISTOL MYERS SQUIBB
  Company Number: US-BRISTOL-MYERS SQUIBB COMPANY-2024-093479

PATIENT
  Age: 57 Year
  Sex: Male
  Weight: 90 kg

DRUGS (2)
  1. ORENCIA [Suspect]
     Active Substance: ABATACEPT
     Indication: Rheumatoid arthritis
     Dosage: DOSE: 3
     Route: 058
     Dates: start: 202312
  2. ORENCIA [Suspect]
     Active Substance: ABATACEPT
     Dosage: DOSE: 3
     Route: 058
     Dates: start: 202312

REACTIONS (3)
  - Device operational issue [Unknown]
  - Liquid product physical issue [Unknown]
  - Product dose omission issue [Unknown]
